FAERS Safety Report 7212440-6 (Version None)
Quarter: 2011Q1

REPORT INFORMATION
  Report Type: 
  Country: None (occurrence: None)
  Receive Date: 20110106
  Receipt Date: 20101229
  Transmission Date: 20110831
  Serious: Yes (Other)
  Sender: FDA-Public Use
  Company Number: US-JNJFOC-20101209138

PATIENT
  Sex: Female
  Weight: 104.33 kg

DRUGS (1)
  1. REMICADE [Suspect]
     Indication: BEHCET'S SYNDROME
     Route: 042

REACTIONS (7)
  - PAIN IN EXTREMITY [None]
  - ANXIETY [None]
  - OESOPHAGEAL ULCER [None]
  - DYSKINESIA [None]
  - NEUROPATHY PERIPHERAL [None]
  - MUSCULOSKELETAL PAIN [None]
  - DEPRESSION [None]
